FAERS Safety Report 17383837 (Version 1)
Quarter: 2020Q1

REPORT INFORMATION
  Report Type: Spontaneous
  Country: US (occurrence: US)
  Receive Date: 20200206
  Receipt Date: 20200206
  Transmission Date: 20200409
  Serious: No
  Sender: FDA-Public Use
  Company Number: US-ABBVIE-19K-163-2864365-00

PATIENT

DRUGS (1)
  1. HUMIRA [Suspect]
     Active Substance: ADALIMUMAB
     Indication: RETINAL VASCULITIS
     Route: 058

REACTIONS (4)
  - Dizziness [Unknown]
  - Fatigue [Unknown]
  - Off label use [Unknown]
  - Somnolence [Unknown]
